FAERS Safety Report 11519141 (Version 1)
Quarter: 2015Q3

REPORT INFORMATION
  Report Type: Spontaneous
  Country: US (occurrence: US)
  Receive Date: 20150917
  Receipt Date: 20150917
  Transmission Date: 20151125
  Serious: No
  Sender: FDA-Public Use
  Company Number: GXBR2015US000489

PATIENT
  Age: 20 Year
  Sex: Female

DRUGS (6)
  1. MIDODRINE HYDROCHLORIDE TABLETS [Suspect]
     Active Substance: MIDODRINE HYDROCHLORIDE
     Indication: POSTURAL ORTHOSTATIC TACHYCARDIA SYNDROME
     Dosage: 5 MG, TWO IN THE MORNING AND THEN ONE EVERY 3 HOURS AFTER THAT WHILE AWAKE
     Route: 048
  2. CARDIZEM [Concomitant]
     Active Substance: DILTIAZEM HYDROCHLORIDE
     Indication: POSTURAL ORTHOSTATIC TACHYCARDIA SYNDROME
     Dosage: UNK DF, QD
     Route: 048
  3. CARDIZEM [Concomitant]
     Active Substance: DILTIAZEM HYDROCHLORIDE
     Indication: HEART RATE
  4. MIDODRINE HYDROCHLORIDE TABLETS [Suspect]
     Active Substance: MIDODRINE HYDROCHLORIDE
     Indication: HEART RATE
  5. MIDODRINE HYDROCHLORIDE TABLETS [Suspect]
     Active Substance: MIDODRINE HYDROCHLORIDE
     Indication: BLOOD PRESSURE MEASUREMENT
  6. CARDIZEM [Concomitant]
     Active Substance: DILTIAZEM HYDROCHLORIDE
     Indication: BLOOD PRESSURE MEASUREMENT

REACTIONS (3)
  - Chest pain [Recovered/Resolved]
  - Palpitations [Recovered/Resolved]
  - Drug ineffective [Recovered/Resolved]

NARRATIVE: CASE EVENT DATE: 20150108
